FAERS Safety Report 9002753 (Version 1)
Quarter: 2013Q1

REPORT INFORMATION
  Report Type: Spontaneous
  Country: US (occurrence: US)
  Receive Date: 20130107
  Receipt Date: 20130107
  Transmission Date: 20140127
  Serious: No
  Sender: FDA-Public Use
  Company Number: US-GLAXOSMITHKLINE-A0998629A

PATIENT
  Sex: 0

DRUGS (1)
  1. BENLYSTA [Suspect]

REACTIONS (1)
  - Weight fluctuation [Unknown]
